FAERS Safety Report 9513990 (Version 1)
Quarter: 2013Q3

REPORT INFORMATION
  Report Type: Spontaneous
  Country: US (occurrence: US)
  Receive Date: 20130910
  Receipt Date: 20130910
  Transmission Date: 20140515
  Serious: No
  Sender: FDA-Public Use
  Company Number: US-JHP PHARMACEUTICALS, LLC-JHP201200368

PATIENT
  Age: 28 Year
  Sex: Female

DRUGS (3)
  1. BREVITAL SODIUM FOR INJECTION [Suspect]
     Indication: INDUCTION OF ANAESTHESIA
     Dosage: 60 MG, UNK
     Route: 042
     Dates: start: 20120716, end: 20120716
  2. BREVITAL SODIUM FOR INJECTION [Suspect]
     Dosage: 40 MG, UNK
     Route: 042
     Dates: start: 20120716, end: 20120716
  3. BREVITAL SODIUM FOR INJECTION [Suspect]
     Dosage: 60 MG, UNK
     Dates: start: 20120716, end: 20120716

REACTIONS (1)
  - Drug ineffective [Recovered/Resolved]
